FAERS Safety Report 4759199-X (Version None)
Quarter: 2005Q3

REPORT INFORMATION
  Report Type: 
  Country: None (occurrence: None)
  Receive Date: 20050831
  Receipt Date: 20050816
  Transmission Date: 20060218
  Serious: Yes (Hospitalization)
  Sender: FDA-Public Use
  Company Number: FR_050806964

PATIENT
  Age: 76 Year
  Sex: Female

DRUGS (7)
  1. FORTEO [Suspect]
     Indication: OSTEOPOROSIS
     Dosage: 20 UG DAY
     Dates: start: 20050217, end: 20050705
  2. PROPRANOLOL [Concomitant]
  3. MODURETIC 5-50 [Concomitant]
  4. PIASCLEDINE       /000809501/(PIAS) [Concomitant]
  5. VELITEN [Concomitant]
  6. IMOVANE (ZOPICLONE) [Concomitant]
  7. CALTRATE [Concomitant]

REACTIONS (3)
  - HYPERTHERMIA [None]
  - PYELONEPHRITIS [None]
  - URINARY TRACT INFECTION [None]
